FAERS Safety Report 21281006 (Version 2)
Quarter: 2022Q3

REPORT INFORMATION
  Report Type: Spontaneous
  Country: CA (occurrence: CA)
  Receive Date: 20220901
  Receipt Date: 20220929
  Transmission Date: 20221026
  Serious: Yes (Death, Hospitalization, Other)
  Sender: FDA-Public Use
  Company Number: CA-PFIZER INC-202201010920

PATIENT
  Age: 80 Year
  Sex: Female

DRUGS (27)
  1. PAXLOVID [Interacting]
     Active Substance: NIRMATRELVIR\RITONAVIR
     Indication: COVID-19 treatment
     Dosage: [PF-07321332 150 MG]/[RITONAVIR 100 MG]; 1X/DAY
     Route: 048
     Dates: start: 2022, end: 2022
  2. PAXLOVID [Interacting]
     Active Substance: NIRMATRELVIR\RITONAVIR
     Dosage: 1 DF, 2 EVERY 1 DAYS
     Route: 042
  3. PAXLOVID [Interacting]
     Active Substance: NIRMATRELVIR\RITONAVIR
     Dosage: 5 DF, 1 EVERY 1 DAYS
     Route: 048
  4. PROGRAF [Interacting]
     Active Substance: TACROLIMUS
     Indication: Renal transplant
     Dosage: 2 MG, 2X/DAY
     Route: 048
     Dates: start: 2011, end: 2022
  5. CELLCEPT [Concomitant]
     Active Substance: MYCOPHENOLATE MOFETIL
     Dosage: 250 MG, 2X/DAY
  6. CELLCEPT [Concomitant]
     Active Substance: MYCOPHENOLATE MOFETIL
     Dosage: UNK
  7. SEPTRA [Concomitant]
     Active Substance: SULFAMETHOXAZOLE\TRIMETHOPRIM
     Dosage: 3/WEEK
  8. VITAMIN D NOS [Concomitant]
     Active Substance: VITAMIN D NOS
     Dosage: 1000 IU, DAILY
  9. VITAMIN D NOS [Concomitant]
     Active Substance: VITAMIN D NOS
     Dosage: UNK
  10. PREDNISONE [Concomitant]
     Active Substance: PREDNISONE
     Dosage: 5 MG, DAILY
  11. PREDNISONE [Concomitant]
     Active Substance: PREDNISONE
     Dosage: UNK
  12. ROPINIROLE [Concomitant]
     Active Substance: ROPINIROLE
     Dosage: 1 MG, AT BEDTIME (HS)
  13. ROPINIROLE [Concomitant]
     Active Substance: ROPINIROLE
     Dosage: UNK
  14. CANDESARTAN CILEXETIL [Concomitant]
     Active Substance: CANDESARTAN CILEXETIL
     Dosage: 8 MG, DAILY
  15. FUROSEMIDE [Concomitant]
     Active Substance: FUROSEMIDE
     Dosage: 20 MG, DAILY
  16. FUROSEMIDE [Concomitant]
     Active Substance: FUROSEMIDE
     Dosage: UNK
  17. GLICLAZIDE [Concomitant]
     Active Substance: GLICLAZIDE
     Dosage: 60 MG, 2X/DAY
  18. GLICLAZIDE [Concomitant]
     Active Substance: GLICLAZIDE
     Dosage: UNK
  19. ALLOPURINOL [Concomitant]
     Active Substance: ALLOPURINOL
     Dosage: 200 MG, DAILY
  20. ALLOPURINOL [Concomitant]
     Active Substance: ALLOPURINOL
     Dosage: UNK
  21. GABAPENTIN [Concomitant]
     Active Substance: GABAPENTIN
     Dosage: 300 MG, 3X/DAY
  22. GABAPENTIN [Concomitant]
     Active Substance: GABAPENTIN
     Dosage: UNK
  23. PAROXETINE [Concomitant]
     Active Substance: PAROXETINE
     Dosage: 10 MG, DAILY
  24. PAROXETINE [Concomitant]
     Active Substance: PAROXETINE
     Dosage: UNK
  25. TACROLIMUS [Concomitant]
     Active Substance: TACROLIMUS
     Dosage: UNK
  26. CANDESARTAN [Concomitant]
     Active Substance: CANDESARTAN
     Dosage: UNK
  27. SULFAMETHOXAZOLE AND TRIMETHOPRIM [Concomitant]
     Active Substance: SULFAMETHOXAZOLE\TRIMETHOPRIM
     Dosage: UNK

REACTIONS (12)
  - Asthenia [Fatal]
  - Dyspnoea [Fatal]
  - Gait disturbance [Fatal]
  - Immunosuppressant drug level increased [Fatal]
  - Drug level above therapeutic [Fatal]
  - Drug interaction [Fatal]
  - Acute kidney injury [Fatal]
  - Fall [Fatal]
  - Respiratory distress [Fatal]
  - Respiratory failure [Fatal]
  - Intensive care [Fatal]
  - Off label use [Unknown]

NARRATIVE: CASE EVENT DATE: 20220101
